FAERS Safety Report 7679528-7 (Version None)
Quarter: 2011Q3

REPORT INFORMATION
  Report Type: 
  Country: None (occurrence: None)
  Receive Date: 20110812
  Receipt Date: 20110802
  Transmission Date: 20111222
  Serious: Yes (Hospitalization)
  Sender: FDA-Public Use
  Company Number: US-GENZYME-POMP-1001666

PATIENT
  Sex: Male
  Weight: 4.4 kg

DRUGS (2)
  1. PROPRANOLOL [Concomitant]
     Indication: HYPERTROPHIC CARDIOMYOPATHY
     Dosage: UNK
  2. MYOZYME [Suspect]
     Indication: GLYCOGEN STORAGE DISEASE TYPE II
     Dosage: 20 MG/KG, Q2W
     Route: 042
     Dates: start: 20110602

REACTIONS (6)
  - MENINGITIS BACTERIAL [None]
  - PYREXIA [None]
  - DEVICE RELATED INFECTION [None]
  - PNEUMONIA [None]
  - BRAIN ABSCESS [None]
  - CONVULSION [None]
